FAERS Safety Report 8323129-4 (Version None)
Quarter: 2012Q2

REPORT INFORMATION
  Report Type: 
  Country: None (occurrence: None)
  Receive Date: 20120430
  Receipt Date: 20120417
  Transmission Date: 20120825
  Serious: Yes (Hospitalization, Other)
  Sender: FDA-Public Use
  Company Number: PHHY2012CA031675

PATIENT
  Sex: Male

DRUGS (8)
  1. AZITHROMYCIN [Concomitant]
  2. EXJADE [Suspect]
     Indication: MYELODYSPLASTIC SYNDROME
     Dosage: 2000 MG, UNK
     Route: 048
     Dates: end: 20111001
  3. CYCLOSPORINE [Interacting]
     Dosage: 250 UKN, BID
  4. CEFTRIAXONE [Concomitant]
  5. LEVOFLOXACIN [Concomitant]
  6. SEPTRA [Concomitant]
  7. AMOXICILLIN AND CLAVULANATE POTASSIUM [Concomitant]
  8. BIAXIN [Interacting]

REACTIONS (6)
  - MALAISE [None]
  - DRUG INTERACTION [None]
  - RENAL FAILURE [None]
  - PNEUMONIA [None]
  - BLOOD CREATININE INCREASED [None]
  - BLOOD IRON INCREASED [None]
